FAERS Safety Report 15606927 (Version 1)
Quarter: 2018Q4

REPORT INFORMATION
  Report Type: Report from Study
  Country: DE (occurrence: DE)
  Receive Date: 20181112
  Receipt Date: 20181112
  Transmission Date: 20190205
  Serious: Yes (Hospitalization, Other)
  Sender: FDA-Public Use
  Company Number: DE-ACCORD-091524

PATIENT
  Age: 64 Year
  Sex: Female

DRUGS (12)
  1. METHOTREXATE. [Suspect]
     Active Substance: METHOTREXATE
     Indication: RHEUMATOID ARTHRITIS
     Route: 065
  2. ROMAZARIT [Concomitant]
     Active Substance: ROMAZARIT
  3. METOHEXAL [Concomitant]
     Active Substance: METOPROLOL
     Route: 065
  4. MABTHERA [Suspect]
     Active Substance: RITUXIMAB
     Route: 042
  5. CALCIVIT D [Concomitant]
     Dosage: DRUG REPORTED: CA, VIT D,
     Route: 065
  6. MABTHERA [Suspect]
     Active Substance: RITUXIMAB
     Route: 042
  7. L-THYROXIN [Concomitant]
     Active Substance: LEVOTHYROXINE SODIUM
     Route: 065
  8. PREDNISOLONE. [Concomitant]
     Active Substance: PREDNISOLONE
  9. MABTHERA [Suspect]
     Active Substance: RITUXIMAB
     Indication: PRODUCT USED FOR UNKNOWN INDICATION
     Route: 042
     Dates: start: 20070802, end: 20070816
  10. SIMVASTATIN. [Concomitant]
     Active Substance: SIMVASTATIN
     Route: 065
  11. MABTHERA [Suspect]
     Active Substance: RITUXIMAB
     Indication: RHEUMATOID ARTHRITIS
     Route: 042
     Dates: start: 20070802, end: 20070816
  12. MABTHERA [Suspect]
     Active Substance: RITUXIMAB
     Route: 042

REACTIONS (2)
  - Malignant melanoma [Recovered/Resolved]
  - Melanoma recurrent [Unknown]

NARRATIVE: CASE EVENT DATE: 200710
